FAERS Safety Report 18307408 (Version 1)
Quarter: 2020Q3

REPORT INFORMATION
  Report Type: Spontaneous
  Country: US (occurrence: US)
  Receive Date: 20200924
  Receipt Date: 20200924
  Transmission Date: 20201103
  Serious: No
  Sender: FDA-Public Use
  Company Number: None

PATIENT
  Age: 51 Year
  Sex: Female
  Weight: 65.25 kg

DRUGS (10)
  1. EMGALITY [Suspect]
     Active Substance: GALCANEZUMAB-GNLM
     Indication: MIGRAINE
     Dosage: ?          OTHER FREQUENCY:ONCE A MONTH;?
     Route: 058
     Dates: start: 20200514
  2. MAGNESIUM [Concomitant]
     Active Substance: MAGNESIUM
  3. VITAMIN D [Concomitant]
     Active Substance: VITAMIN D NOS
  4. BOTOX [Concomitant]
     Active Substance: ONABOTULINUMTOXINA
  5. TIZANIDINE. [Concomitant]
     Active Substance: TIZANIDINE
  6. FROVATRIPTAN. [Concomitant]
     Active Substance: FROVATRIPTAN
  7. KEPPRA [Concomitant]
     Active Substance: LEVETIRACETAM
  8. PROPRANOLOL [Concomitant]
     Active Substance: PROPRANOLOL HYDROCHLORIDE
  9. FLUOXETINE [Concomitant]
     Active Substance: FLUOXETINE HYDROCHLORIDE
  10. FLONASE [Concomitant]
     Active Substance: FLUTICASONE PROPIONATE

REACTIONS (3)
  - Pruritus [None]
  - Injection site warmth [None]
  - Injection site reaction [None]

NARRATIVE: CASE EVENT DATE: 20200914
